FAERS Safety Report 8081701-3 (Version None)
Quarter: 2012Q1

REPORT INFORMATION
  Report Type: 
  Country: None (occurrence: None)
  Receive Date: 20120130
  Receipt Date: 20120117
  Transmission Date: 20120608
  Serious: Yes (Other)
  Sender: FDA-Public Use
  Company Number: NL-MYLANLABS-2012S1001177

PATIENT
  Age: 56 Year
  Sex: Male

DRUGS (3)
  1. MELOXICAM [Suspect]
     Indication: PRODUCT USED FOR UNKNOWN INDICATION
     Dosage: 1X DAAGS 1
     Route: 048
     Dates: start: 20090203, end: 20090608
  2. METHOTREXATE [Concomitant]
     Indication: PRODUCT USED FOR UNKNOWN INDICATION
     Dosage: 1X3 PER WEEK
     Route: 048
     Dates: start: 20080421
  3. FOLIUMZUUR ACTAVIS [Concomitant]
     Indication: PRODUCT USED FOR UNKNOWN INDICATION
     Dosage: 6X1 PER WEEK
     Route: 048
     Dates: start: 20080421

REACTIONS (2)
  - MALAISE [None]
  - ARTHROPATHY [None]
